FAERS Safety Report 4662549-6 (Version None)
Quarter: 2005Q2

REPORT INFORMATION
  Report Type: 
  Country: None (occurrence: None)
  Receive Date: 20050512
  Receipt Date: 20050502
  Transmission Date: 20051028
  Serious: No
  Sender: FDA-Public Use
  Company Number: EM2005-0210

PATIENT
  Age: 44 Year
  Sex: Male
  Weight: 69 kg

DRUGS (12)
  1. MACROLIN [Suspect]
     Indication: HIV INFECTION
     Dosage: SEE IMAGE
     Route: 058
     Dates: start: 20040913, end: 20040917
  2. MACROLIN [Suspect]
     Indication: HIV INFECTION
     Dosage: SEE IMAGE
     Route: 058
     Dates: start: 20041025, end: 20041029
  3. MACROLIN [Suspect]
     Indication: HIV INFECTION
     Dosage: SEE IMAGE
     Route: 058
     Dates: start: 20041206, end: 20041210
  4. MACROLIN [Suspect]
     Indication: HIV INFECTION
     Dosage: SEE IMAGE
     Route: 058
     Dates: start: 20050117, end: 20050121
  5. MACROLIN [Suspect]
     Indication: HIV INFECTION
     Dosage: SEE IMAGE
     Route: 058
     Dates: start: 20050228, end: 20050304
  6. MACROLIN [Suspect]
     Indication: HIV INFECTION
     Dosage: SEE IMAGE
     Route: 058
     Dates: start: 20050418, end: 20050420
  7. ZIAGEN [Concomitant]
  8. RIVTORIL (CLONAZEPAM) [Concomitant]
  9. ATARAX [Concomitant]
  10. GEMFIBROZIL [Concomitant]
  11. VIREAD [Concomitant]
  12. KALETRA [Concomitant]

REACTIONS (5)
  - BRONCHOSPASM [None]
  - C-REACTIVE PROTEIN INCREASED [None]
  - DYSPNOEA [None]
  - PYREXIA [None]
  - RHONCHI [None]
